FAERS Safety Report 4948874-X (Version None)
Quarter: 2006Q1

REPORT INFORMATION
  Report Type: 
  Country: None (occurrence: None)
  Receive Date: 20060321
  Receipt Date: 20050524
  Transmission Date: 20060701
  Serious: Yes (Other)
  Sender: FDA-Public Use
  Company Number: SEWYE697726MAY05

PATIENT
  Sex: Female

DRUGS (6)
  1. ENBREL [Suspect]
     Indication: ARTHRITIS
     Dosage: 30 MG PER WEEK
     Route: 058
     Dates: start: 20050207, end: 20050307
  2. ENBREL [Suspect]
     Indication: INFECTIVE TENOSYNOVITIS
  3. ENBREL [Suspect]
     Indication: SARCOIDOSIS
  4. PREDNISOLONE [Concomitant]
     Dosage: 5 MG PER DAY
     Dates: start: 20050101
  5. UNSPECIFIED OPHTHALMIC PREPARATION [Concomitant]
  6. SOMATROPIN [Concomitant]

REACTIONS (1)
  - UVEITIS [None]
